FAERS Safety Report 10193308 (Version 1)
Quarter: 2014Q2

REPORT INFORMATION
  Report Type: Spontaneous
  Country: US (occurrence: US)
  Receive Date: 20140524
  Receipt Date: 20140524
  Transmission Date: 20141212
  Serious: No
  Sender: FDA-Public Use
  Company Number: US-SA-2014SA013319

PATIENT
  Age: 66 Year
  Sex: Male

DRUGS (6)
  1. LANTUS SOLOSTAR [Suspect]
     Indication: TYPE 2 DIABETES MELLITUS
     Dosage: DOSE:16 UNIT(S)
     Route: 051
  2. INFLUENZA VACCINE [Suspect]
     Route: 065
  3. SOLOSTAR [Concomitant]
     Indication: TYPE 2 DIABETES MELLITUS
  4. ANALGESICS [Concomitant]
  5. JANUVIA [Concomitant]
  6. CHOLESTEROL [Concomitant]

REACTIONS (4)
  - Nasopharyngitis [Unknown]
  - Muscle spasms [Unknown]
  - Pain [Unknown]
  - Pancreatic disorder [Unknown]
